FAERS Safety Report 9156363 (Version 2)
Quarter: 2013Q2

REPORT INFORMATION
  Report Type: Spontaneous
  Country: US (occurrence: US)
  Receive Date: 20130312
  Receipt Date: 20130515
  Transmission Date: 20140414
  Serious: Yes (Hospitalization)
  Sender: FDA-Public Use
  Company Number: US-BIOGENIDEC-2013BI021596

PATIENT
  Sex: Male

DRUGS (2)
  1. AVONEX [Suspect]
     Indication: PRODUCT USED FOR UNKNOWN INDICATION
     Route: 030
     Dates: end: 2005
  2. PAIN MEDICATION (NOS) [Concomitant]

REACTIONS (3)
  - Pulmonary oedema [Unknown]
  - Liver disorder [Unknown]
  - Liver function test abnormal [Unknown]
